FAERS Safety Report 18842026 (Version 1)
Quarter: 2021Q1

REPORT INFORMATION
  Report Type: Spontaneous
  Country: FR (occurrence: FR)
  Receive Date: 20210203
  Receipt Date: 20210203
  Transmission Date: 20210419
  Serious: Yes (Hospitalization)
  Sender: FDA-Public Use
  Company Number: FR-ALLERGAN-2104679US

PATIENT
  Sex: Female
  Weight: 56 kg

DRUGS (11)
  1. TRAMADOL BASE [Concomitant]
     Active Substance: TRAMADOL
     Dosage: 200 MCI, QD
  2. XYDALBA [Suspect]
     Active Substance: DALBAVANCIN HYDROCHLORIDE
     Indication: OSTEOMYELITIS
     Dosage: 1500 MG, SINGLE
     Route: 041
     Dates: start: 20201231, end: 20201231
  3. TIORFAN [Concomitant]
     Active Substance: RACECADOTRIL
     Dosage: 200 MG, QD
  4. KARDEGIC [Concomitant]
     Active Substance: ASPIRIN DL-LYSINE
     Dosage: 75 MG, QD
  5. NEFOPAM HYDROCHLORIDE [Concomitant]
     Active Substance: NEFOPAM HYDROCHLORIDE
     Dosage: 4 DF, QD
  6. RIFAMPICINE [Concomitant]
     Active Substance: RIFAMPIN
  7. PARACETAMOL [Concomitant]
     Active Substance: ACETAMINOPHEN
     Dosage: 4 G, QD
     Route: 048
  8. LEVOTHYROXINE SODIUM. [Concomitant]
     Active Substance: LEVOTHYROXINE SODIUM
     Dosage: 50 ?G, QD
  9. FUMAFER [Concomitant]
     Active Substance: FERROUS FUMARATE
     Dosage: 2 DF, QD
  10. BISOPROLOL [Concomitant]
     Active Substance: BISOPROLOL
  11. LOPERAMIDE CHLORHYDRATE [Concomitant]
     Active Substance: LOPERAMIDE HYDROCHLORIDE
     Dosage: 6 MG, QD

REACTIONS (2)
  - Off label use [Unknown]
  - Hyperthermia [Recovered/Resolved]

NARRATIVE: CASE EVENT DATE: 20201231
